FAERS Safety Report 23831582 (Version 1)
Quarter: 2024Q2

REPORT INFORMATION
  Report Type: Spontaneous
  Country: US (occurrence: None)
  Receive Date: 20240507
  Receipt Date: 20240507
  Transmission Date: 20240716
  Serious: Yes (Hospitalization)
  Sender: FDA-Public Use
  Company Number: None

PATIENT
  Age: 47 Year
  Sex: Male
  Weight: 138 kg

DRUGS (2)
  1. GABAPENTIN [Suspect]
     Active Substance: GABAPENTIN
     Indication: Pain
     Dosage: FREQUENCY : TWICE A DAY;?
     Route: 048
     Dates: start: 20220811, end: 20220923
  2. AMITRIPTYLINE HYDROCHLORIDE [Suspect]
     Active Substance: AMITRIPTYLINE HYDROCHLORIDE
     Dosage: FREQUENCY : DAILY;?
     Route: 048
     Dates: start: 20220515

REACTIONS (5)
  - Face oedema [None]
  - Swelling [None]
  - Paraesthesia [None]
  - Balance disorder [None]
  - Breast oedema [None]

NARRATIVE: CASE EVENT DATE: 20220913
